FAERS Safety Report 19086802 (Version 6)
Quarter: 2022Q1

REPORT INFORMATION
  Report Type: Other
  Country: PL (occurrence: PL)
  Receive Date: 20210402
  Receipt Date: 20220126
  Transmission Date: 20220424
  Serious: Yes (Death, Hospitalization)
  Sender: FDA-Public Use
  Company Number: PL-KRKA-PL2021K03447LIT

PATIENT
  Age: 31 Year
  Sex: Female

DRUGS (15)
  1. CAPECITABINE [Suspect]
     Active Substance: CAPECITABINE
     Indication: Chemotherapy
     Dosage: UNK UNK, PRN (ON DEMAND
     Route: 048
  2. CAPECITABINE [Suspect]
     Active Substance: CAPECITABINE
     Route: 048
     Dates: start: 2019, end: 2019
  3. OXYCODONE HYDROCHLORIDE [Suspect]
     Active Substance: OXYCODONE HYDROCHLORIDE
     Indication: Pain
     Route: 065
     Dates: start: 2020
  4. OXYCODONE HYDROCHLORIDE [Suspect]
     Active Substance: OXYCODONE HYDROCHLORIDE
     Route: 065
     Dates: start: 2019
  5. OXYCODONE HYDROCHLORIDE [Suspect]
     Active Substance: OXYCODONE HYDROCHLORIDE
     Dosage: 5 MG, PRN (IMMEDIATE RELEASE
     Route: 065
     Dates: start: 2020
  6. DROTAVERINE [Suspect]
     Active Substance: DROTAVERINE
     Indication: Product used for unknown indication
     Route: 065
     Dates: start: 2019
  7. ACETAMINOPHEN\TRAMADOL [Suspect]
     Active Substance: ACETAMINOPHEN\TRAMADOL
     Indication: Pain
     Dosage: 37.5MG+325MG
     Route: 065
  8. NALOXONE HYDROCHLORIDE\OXYCODONE HYDROCHLORIDE [Suspect]
     Active Substance: NALOXONE HYDROCHLORIDE\OXYCODONE HYDROCHLORIDE
     Indication: Product used for unknown indication
     Route: 065
     Dates: start: 201908
  9. PROPRANOLOL [Suspect]
     Active Substance: PROPRANOLOL HYDROCHLORIDE
     Indication: Product used for unknown indication
     Route: 065
     Dates: start: 2019
  10. TEMOZOLOMIDE [Suspect]
     Active Substance: TEMOZOLOMIDE
     Indication: Chemotherapy
     Route: 065
     Dates: start: 2019, end: 2019
  11. LEVOTHYROXINE [Concomitant]
     Active Substance: LEVOTHYROXINE
     Indication: Thyroid therapy
  12. PROPRANOLOL [Concomitant]
     Active Substance: PROPRANOLOL HYDROCHLORIDE
  13. OXYCODONE [Concomitant]
     Active Substance: OXYCODONE
  14. OXYCODONE [Concomitant]
     Active Substance: OXYCODONE
     Dosage: 20 MG, PER DAY
  15. DROTAVERINE [Concomitant]
     Active Substance: DROTAVERINE
     Dosage: 40 MG, PER DAY

REACTIONS (16)
  - Malignant neoplasm progression [Fatal]
  - Asthenia [Fatal]
  - Dry mouth [Fatal]
  - Abdominal pain [Fatal]
  - Dysphoria [Fatal]
  - Epilepsy [Fatal]
  - Constipation [Fatal]
  - Anaemia [Fatal]
  - Pain [Fatal]
  - Impulse-control disorder [Fatal]
  - Loss of consciousness [Unknown]
  - Intentional product use issue [Unknown]
  - Therapy cessation [Unknown]
  - Discontinued product administered [Unknown]
  - Drug intolerance [Unknown]
  - Off label use [Unknown]

NARRATIVE: CASE EVENT DATE: 20190101
